FAERS Safety Report 5528355-5 (Version None)
Quarter: 2007Q4

REPORT INFORMATION
  Report Type: 
  Country: None (occurrence: None)
  Receive Date: 20071121
  Receipt Date: 20071112
  Transmission Date: 20080405
  Serious: Yes (Hospitalization)
  Sender: FDA-Public Use
  Company Number: 2007AL004794

PATIENT
  Age: 74 Year
  Sex: Female

DRUGS (1)
  1. GABAPENTIN [Suspect]
     Indication: DRUG USE FOR UNKNOWN INDICATION
     Dosage: 1200 MG; QD; PO
     Route: 048

REACTIONS (7)
  - ABDOMINAL PAIN [None]
  - BLOOD PH DECREASED [None]
  - DEPRESSED LEVEL OF CONSCIOUSNESS [None]
  - HYPERKALAEMIA [None]
  - HYPERSOMNIA [None]
  - POOR QUALITY SLEEP [None]
  - RESPIRATORY FAILURE [None]
